FAERS Safety Report 5763370-8 (Version None)
Quarter: 2008Q2

REPORT INFORMATION
  Report Type: 
  Country: None (occurrence: None)
  Receive Date: 20080609
  Receipt Date: 20080602
  Transmission Date: 20081010
  Serious: Yes (Hospitalization)
  Sender: FDA-Public Use
  Company Number: JP-BOEHRINGER INGELHEIM GMBH, GERMANY-2008-BP-06609NB

PATIENT
  Sex: Female
  Weight: 68.7 kg

DRUGS (9)
  1. MOBIC [Suspect]
     Indication: ARTHRALGIA
     Route: 048
     Dates: end: 20080424
  2. LIVACT [Concomitant]
     Indication: HYPOALBUMINAEMIA
     Route: 048
  3. URSO 250 [Concomitant]
     Indication: HEPATITIS
     Route: 048
  4. LASIX [Concomitant]
     Indication: OEDEMA DUE TO HEPATIC DISEASE
     Route: 048
  5. ALDACTONE [Concomitant]
     Indication: OEDEMA DUE TO HEPATIC DISEASE
     Route: 048
  6. AMARYL [Concomitant]
     Indication: DIABETES MELLITUS
     Route: 048
  7. FAMOTIDINE [Concomitant]
     Indication: GASTRITIS
     Route: 048
  8. KURASIE [Concomitant]
     Indication: MUSCLE SPASMS
     Route: 048
  9. NEOPHAGEN [Concomitant]
     Indication: HEPATITIS
     Route: 042

REACTIONS (1)
  - BLEEDING TIME PROLONGED [None]
